FAERS Safety Report 12772770 (Version 1)
Quarter: 2016Q3

REPORT INFORMATION
  Report Type: Spontaneous
  Country: PL (occurrence: PL)
  Receive Date: 20160922
  Receipt Date: 20160922
  Transmission Date: 20161109
  Serious: Yes (Other)
  Sender: FDA-Public Use
  Company Number: PL-009507513-1609POL008893

PATIENT
  Age: 64 Year
  Sex: Female

DRUGS (1)
  1. DIPROPHOS [Suspect]
     Active Substance: BECLOMETHASONE DIPROPIONATE\BETAMETHASONE SODIUM PHOSPHATE
     Dosage: ROUTE OF ADMINISTRATION: INJECTION IN THE HIP

REACTIONS (1)
  - Diabetes mellitus [Not Recovered/Not Resolved]
